FAERS Safety Report 4713784-X (Version None)
Quarter: 2005Q3

REPORT INFORMATION
  Report Type: 
  Country: None (occurrence: None)
  Receive Date: 20050712
  Receipt Date: 20050707
  Transmission Date: 20060218
  Serious: Yes (Other)
  Sender: FDA-Public Use
  Company Number: 142336USA

PATIENT
  Sex: Female
  Weight: 63.5036 kg

DRUGS (4)
  1. COPAXONE [Suspect]
     Indication: MULTIPLE SCLEROSIS
     Dates: start: 20020101
  2. NORVASC [Concomitant]
  3. SULFAZINE [Concomitant]
  4. IBUPROFEN [Concomitant]

REACTIONS (2)
  - ERYTHEMA [None]
  - SARCOIDOSIS [None]
